FAERS Safety Report 17855842 (Version 1)
Quarter: 2020Q2

REPORT INFORMATION
  Report Type: Spontaneous
  Country: US (occurrence: US)
  Receive Date: 20200603
  Receipt Date: 20200603
  Transmission Date: 20200714
  Serious: No
  Sender: FDA-Public Use
  Company Number: US-AVEDRO-AVE-2019-0463-AE

PATIENT
  Age: 44 Year
  Sex: Female

DRUGS (3)
  1. BANDAGE CONTACT LENS [Suspect]
     Active Substance: DEVICE
     Indication: PRODUCT USED FOR UNKNOWN INDICATION
     Route: 047
     Dates: start: 20191029, end: 20191029
  2. BANDAGE CONTACT LENS [Suspect]
     Active Substance: DEVICE
     Route: 047
     Dates: start: 20191029
  3. AVEDRO CROSS-LINKING PRODUCT(S), UNSPECIFIED [Suspect]
     Active Substance: RIBOFLAVIN 5^-PHOSPHATE SODIUM
     Indication: KERATOCONUS
     Route: 047
     Dates: start: 20191029, end: 20191029

REACTIONS (3)
  - Eye pain [Recovered/Resolved]
  - Eye complication associated with device [Recovered/Resolved]
  - Vision blurred [Recovering/Resolving]

NARRATIVE: CASE EVENT DATE: 2019
